FAERS Safety Report 11317480 (Version 1)
Quarter: 2015Q3

REPORT INFORMATION
  Report Type: Spontaneous
  Country: US (occurrence: None)
  Receive Date: 20150727
  Receipt Date: 20150727
  Transmission Date: 20151125
  Serious: Yes (Other)
  Sender: FDA-Public Use
  Company Number: None

PATIENT
  Age: 53 Year
  Sex: Male
  Weight: 77.11 kg

DRUGS (2)
  1. LORTAB [Suspect]
     Active Substance: ACETAMINOPHEN\HYDROCODONE BITARTRATE
     Indication: BACK PAIN
     Route: 048
     Dates: start: 201408, end: 201409
  2. KEPPRA [Concomitant]
     Active Substance: LEVETIRACETAM

REACTIONS (8)
  - Muscle spasms [None]
  - Hallucination [None]
  - Amnesia [None]
  - Dizziness [None]
  - Vomiting [None]
  - Nausea [None]
  - Disturbance in attention [None]
  - Retching [None]

NARRATIVE: CASE EVENT DATE: 20140827
